FAERS Safety Report 25162839 (Version 1)
Quarter: 2025Q2

REPORT INFORMATION
  Report Type: Spontaneous
  Country: HU (occurrence: HU)
  Receive Date: 20250404
  Receipt Date: 20250404
  Transmission Date: 20250717
  Serious: Yes (Death)
  Sender: MYLAN
  Company Number: HU-KRKA-HU2025K05109LIT

PATIENT
  Sex: Female

DRUGS (24)
  1. LENALIDOMIDE [Suspect]
     Active Substance: LENALIDOMIDE
     Indication: Plasma cell myeloma
  2. LENALIDOMIDE [Suspect]
     Active Substance: LENALIDOMIDE
     Route: 065
  3. LENALIDOMIDE [Suspect]
     Active Substance: LENALIDOMIDE
     Route: 065
  4. LENALIDOMIDE [Suspect]
     Active Substance: LENALIDOMIDE
  5. DOCETAXEL [Suspect]
     Active Substance: DOCETAXEL
     Indication: Breast cancer
  6. DOCETAXEL [Suspect]
     Active Substance: DOCETAXEL
     Route: 065
  7. DOCETAXEL [Suspect]
     Active Substance: DOCETAXEL
     Route: 065
  8. DOCETAXEL [Suspect]
     Active Substance: DOCETAXEL
  9. DEXAMETHASONE [Suspect]
     Active Substance: DEXAMETHASONE
     Indication: Plasma cell myeloma
     Dates: start: 2023
  10. DEXAMETHASONE [Suspect]
     Active Substance: DEXAMETHASONE
     Route: 065
     Dates: start: 2023
  11. DEXAMETHASONE [Suspect]
     Active Substance: DEXAMETHASONE
     Route: 065
     Dates: start: 2023
  12. DEXAMETHASONE [Suspect]
     Active Substance: DEXAMETHASONE
     Dates: start: 2023
  13. TRASTUZUMAB [Suspect]
     Active Substance: TRASTUZUMAB
     Indication: Breast cancer
  14. TRASTUZUMAB [Suspect]
     Active Substance: TRASTUZUMAB
     Route: 065
  15. TRASTUZUMAB [Suspect]
     Active Substance: TRASTUZUMAB
     Route: 065
  16. TRASTUZUMAB [Suspect]
     Active Substance: TRASTUZUMAB
  17. ISATUXIMAB [Suspect]
     Active Substance: ISATUXIMAB
     Indication: Plasma cell myeloma
  18. ISATUXIMAB [Suspect]
     Active Substance: ISATUXIMAB
     Route: 065
  19. ISATUXIMAB [Suspect]
     Active Substance: ISATUXIMAB
     Route: 065
  20. ISATUXIMAB [Suspect]
     Active Substance: ISATUXIMAB
  21. CARFILZOMIB [Suspect]
     Active Substance: CARFILZOMIB
     Indication: Plasma cell myeloma
  22. CARFILZOMIB [Suspect]
     Active Substance: CARFILZOMIB
     Route: 065
  23. CARFILZOMIB [Suspect]
     Active Substance: CARFILZOMIB
     Route: 065
  24. CARFILZOMIB [Suspect]
     Active Substance: CARFILZOMIB

REACTIONS (1)
  - Second primary malignancy [Fatal]
